FAERS Safety Report 13501259 (Version 3)
Quarter: 2018Q2

REPORT INFORMATION
  Report Type: Spontaneous
  Country: US (occurrence: US)
  Receive Date: 20170501
  Receipt Date: 20180507
  Transmission Date: 20180711
  Serious: No
  Sender: FDA-Public Use
  Company Number: US-ROCHE-1890089

PATIENT
  Age: 83 Year
  Sex: Male

DRUGS (2)
  1. ESBRIET [Suspect]
     Active Substance: PIRFENIDONE
     Indication: IDIOPATHIC PULMONARY FIBROSIS
     Dosage: 3 CAPSULES
     Route: 048
     Dates: start: 20160307
  2. ESBRIET [Suspect]
     Active Substance: PIRFENIDONE
     Route: 048
     Dates: start: 20160416

REACTIONS (4)
  - Headache [Unknown]
  - Vomiting [Unknown]
  - Fatigue [Unknown]
  - Dysgeusia [Unknown]

NARRATIVE: CASE EVENT DATE: 20170105
